FAERS Safety Report 5321036-2 (Version None)
Quarter: 2007Q2

REPORT INFORMATION
  Report Type: 
  Country: None (occurrence: None)
  Receive Date: 20070504
  Receipt Date: 20070504
  Transmission Date: 20071010
  Serious: No
  Sender: FDA-Public Use
  Company Number: None

PATIENT
  Sex: Female
  Weight: 64 kg

DRUGS (2)
  1. OXYCONTIN [Suspect]
     Indication: MYOFASCIAL PAIN SYNDROME
     Dosage: 20 MG ONE PO Q12HR PO
     Route: 048
     Dates: start: 20020430
  2. OXYCONTIN [Suspect]
     Indication: PELVIC PAIN
     Dosage: 10 MG ONE PO Q12N PO
     Route: 048
     Dates: start: 20020430

REACTIONS (4)
  - NAUSEA [None]
  - PHARMACEUTICAL PRODUCT COMPLAINT [None]
  - RASH [None]
  - VOMITING [None]
